FAERS Safety Report 18038340 (Version 1)
Quarter: 2020Q3

REPORT INFORMATION
  Report Type: Spontaneous
  Country: US (occurrence: US)
  Receive Date: 20200718
  Receipt Date: 20200718
  Transmission Date: 20201103
  Serious: No
  Sender: FDA-Public Use
  Company Number: US-009507513-2007USA004326

PATIENT
  Age: 31 Year
  Sex: Female
  Weight: 62.59 kg

DRUGS (1)
  1. NEXPLANON [Suspect]
     Active Substance: ETONOGESTREL
     Indication: CONTRACEPTION
     Dosage: 1 IMPLANT, EVERY 3 YEARS (NON DOMINANT ARM)
     Route: 059
     Dates: start: 201907

REACTIONS (2)
  - Complication associated with device [Not Recovered/Not Resolved]
  - Weight decreased [Not Recovered/Not Resolved]
